FAERS Safety Report 10581629 (Version 6)
Quarter: 2015Q2

REPORT INFORMATION
  Report Type: Spontaneous
  Country: US (occurrence: US)
  Receive Date: 20141113
  Receipt Date: 20150415
  Transmission Date: 20150821
  Serious: Yes (Life-Threatening, Congenital Anomaly, Other)
  Sender: FDA-Public Use
  Company Number: US-ELI_LILLY_AND_COMPANY-US201411002665

PATIENT
  Sex: Female

DRUGS (3)
  1. AMPICILLIN [Concomitant]
     Active Substance: AMPICILLIN
     Indication: PRODUCT USED FOR UNKNOWN INDICATION
     Dosage: UNK, UNKNOWN
     Route: 064
  2. COCAINE [Concomitant]
     Active Substance: COCAINE
  3. PROZAC [Suspect]
     Active Substance: FLUOXETINE HYDROCHLORIDE
     Indication: PRODUCT USED FOR UNKNOWN INDICATION
     Dosage: UNK, UNKNOWN
     Route: 064

REACTIONS (13)
  - Cleft palate [Recovered/Resolved]
  - Craniofacial deformity [Unknown]
  - Apnoea neonatal [Recovered/Resolved]
  - Anaemia neonatal [Recovered/Resolved]
  - Sepsis neonatal [Recovered/Resolved]
  - Premature baby [Recovered/Resolved]
  - Neonatal respiratory distress syndrome [Recovered/Resolved]
  - Cleft uvula [Not Recovered/Not Resolved]
  - Hyperbilirubinaemia neonatal [Recovering/Resolving]
  - Retinopathy of prematurity [Recovered/Resolved]
  - Malocclusion [Unknown]
  - Bradycardia neonatal [Recovered/Resolved]
  - Foetal exposure during pregnancy [Recovered/Resolved]
